FAERS Safety Report 6298822-8 (Version None)
Quarter: 2009Q3

REPORT INFORMATION
  Report Type: 
  Country: None (occurrence: None)
  Receive Date: 20090805
  Receipt Date: 20090805
  Transmission Date: 20100115
  Serious: No
  Sender: FDA-Public Use
  Company Number: None

PATIENT
  Sex: Female
  Weight: 97.977 kg

DRUGS (1)
  1. ZYMAR [Suspect]
     Indication: INFECTION
     Dosage: 1 DROP, ONCE EACH EYE
     Dates: start: 20090711

REACTIONS (2)
  - DIZZINESS [None]
  - FALL [None]
